FAERS Safety Report 22052895 (Version 3)
Quarter: 2023Q4

REPORT INFORMATION
  Report Type: Spontaneous
  Country: US (occurrence: US)
  Receive Date: 20230302
  Receipt Date: 20231110
  Transmission Date: 20240109
  Serious: No
  Sender: FDA-Public Use
  Company Number: US-BRISTOL-MYERS SQUIBB COMPANY-2023-029120

PATIENT
  Age: 54 Year
  Sex: Male
  Weight: 138.34 kg

DRUGS (1)
  1. REVLIMID [Suspect]
     Active Substance: LENALIDOMIDE
     Indication: Plasma cell myeloma
     Dosage: FREQ: DAILY FOR 21DAYS?FREQUENCY-3 WKS ON,1 OFF
     Route: 048
     Dates: start: 20200301

REACTIONS (3)
  - Fatigue [Unknown]
  - Blood potassium decreased [Unknown]
  - Paraesthesia [Not Recovered/Not Resolved]
